FAERS Safety Report 10249434 (Version 1)
Quarter: 2014Q2

REPORT INFORMATION
  Report Type: Spontaneous
  Country: US (occurrence: US)
  Receive Date: 20140620
  Receipt Date: 20140620
  Transmission Date: 20141212
  Serious: Yes (Other)
  Sender: FDA-Public Use
  Company Number: PHHY2014US074712

PATIENT
  Age: 68 Year
  Sex: Male

DRUGS (7)
  1. FLUDARABINE [Suspect]
     Indication: CHRONIC LYMPHOCYTIC LEUKAEMIA
  2. FLUDARABINE [Suspect]
     Indication: CHEMOTHERAPY
  3. CHLORAMBUCIL [Suspect]
     Indication: CHRONIC LYMPHOCYTIC LEUKAEMIA
     Route: 048
  4. CHLORAMBUCIL [Suspect]
     Indication: CHEMOTHERAPY
  5. CYCLOPHOSPHAMIDE [Suspect]
     Indication: CHRONIC LYMPHOCYTIC LEUKAEMIA
  6. CYCLOPHOSPHAMIDE [Suspect]
     Indication: CHEMOTHERAPY
  7. STEROID [Suspect]
     Indication: IMMUNOSUPPRESSION

REACTIONS (9)
  - Neurotrophic keratopathy [Recovered/Resolved]
  - Corneal perforation [Recovered/Resolved]
  - Ophthalmic herpes zoster [Recovered/Resolved]
  - Ulcerative keratitis [Recovered/Resolved]
  - Endophthalmitis [Recovered/Resolved]
  - Hypopyon [Recovered/Resolved]
  - Vitritis [Recovered/Resolved]
  - Vision blurred [Recovered/Resolved]
  - Mycobacterium chelonae infection [Recovered/Resolved]
